FAERS Safety Report 9847870 (Version 7)
Quarter: 2016Q3

REPORT INFORMATION
  Report Type: Spontaneous
  Country: CA (occurrence: CA)
  Receive Date: 20140128
  Receipt Date: 20160921
  Transmission Date: 20161109
  Serious: Yes (Hospitalization)
  Sender: FDA-Public Use
  Company Number: CA-ROCHE-1339789

PATIENT
  Age: 41 Year
  Sex: Female

DRUGS (3)
  1. SINGULAIR [Concomitant]
     Active Substance: MONTELUKAST SODIUM
  2. XOLAIR [Suspect]
     Active Substance: OMALIZUMAB
     Indication: ASTHMA
     Route: 058
     Dates: start: 20140109
  3. XOLAIR [Suspect]
     Active Substance: OMALIZUMAB
     Route: 058
     Dates: start: 20160518

REACTIONS (13)
  - Dysphonia [Unknown]
  - Dyspnoea [Unknown]
  - Fall [Unknown]
  - Chest discomfort [Unknown]
  - Alopecia [Not Recovered/Not Resolved]
  - Malaise [Unknown]
  - Sensitivity to weather change [Unknown]
  - Tremor [Unknown]
  - Upper limb fracture [Unknown]
  - Fatigue [Unknown]
  - Asthma [Unknown]
  - Loss of consciousness [Unknown]
  - Respiratory disorder [Unknown]

NARRATIVE: CASE EVENT DATE: 20140115
